FAERS Safety Report 8927716 (Version 1)
Quarter: 2012Q4

REPORT INFORMATION
  Report Type: 
  Country: US (occurrence: US)
  Receive Date: 20121127
  Receipt Date: 20121127
  Transmission Date: 20130627
  Serious: Yes (Other)
  Sender: FDA-Public Use
  Company Number: PHHY2012US106712

PATIENT

DRUGS (2)
  1. RITALIN [Suspect]
  2. ADDERALL [Suspect]

REACTIONS (1)
  - Intentional drug misuse [Unknown]
